FAERS Safety Report 4655015-5 (Version None)
Quarter: 2005Q2

REPORT INFORMATION
  Report Type: 
  Country: None (occurrence: None)
  Receive Date: 20050504
  Receipt Date: 20050427
  Transmission Date: 20051028
  Serious: Yes (Hospitalization)
  Sender: FDA-Public Use
  Company Number: 200510851BWH

PATIENT
  Age: 49 Year
  Sex: Male

DRUGS (2)
  1. AVELOX [Suspect]
     Indication: INFECTION
     Dosage: 400 MG, QD, ORAL, A FEW DAYS
     Route: 048
  2. ALPRAZOLAM [Concomitant]

REACTIONS (3)
  - NEUROPATHY [None]
  - PAIN IN EXTREMITY [None]
  - PERONEAL NERVE PALSY [None]
